FAERS Safety Report 4654067-6 (Version None)
Quarter: 2005Q2

REPORT INFORMATION
  Report Type: 
  Country: None (occurrence: None)
  Receive Date: 20050404
  Receipt Date: 20050111
  Transmission Date: 20051028
  Serious: No
  Sender: FDA-Public Use
  Company Number: USA050187932

PATIENT
  Age: 52 Year
  Sex: Male

DRUGS (20)
  1. CYMBALTA [Suspect]
     Indication: DIABETIC NEUROPATHY
     Dosage: 60 MG AT BEDTIME
     Dates: end: 20050107
  2. OXYCONTIN [Concomitant]
  3. DURAGESIC (FENTANYL) [Concomitant]
  4. ASPIRIN [Concomitant]
  5. ALTACE [Concomitant]
  6. AMBIEN [Concomitant]
  7. COREG [Concomitant]
  8. COUMADIN [Concomitant]
  9. DICLOFENAC [Concomitant]
  10. FUROSEMIDE [Concomitant]
  11. LANTUS [Concomitant]
  12. NOVOLOG [Concomitant]
  13. HYDROXYZINE [Concomitant]
  14. NIASPAN [Concomitant]
  15. POTASSIUM CHLORIDE [Concomitant]
  16. SPIRONOLACTONE [Concomitant]
  17. SYNTHROID [Concomitant]
  18. REGLAN [Concomitant]
  19. ZETIA [Concomitant]
  20. ACETAMINOPHEN W/ HYDROCODONE [Concomitant]

REACTIONS (3)
  - MUSCLE TWITCHING [None]
  - SLEEP TALKING [None]
  - SOMNOLENCE [None]
